FAERS Safety Report 16094088 (Version 1)
Quarter: 2019Q1

REPORT INFORMATION
  Report Type: Spontaneous
  Country: GB (occurrence: GB)
  Receive Date: 20190320
  Receipt Date: 20190320
  Transmission Date: 20190418
  Serious: Yes (Life-Threatening, Hospitalization)
  Sender: FDA-Public Use
  Company Number: GB-ACCORD-114292

PATIENT
  Age: 79 Year
  Sex: Male

DRUGS (9)
  1. FINASTERIDE. [Concomitant]
     Active Substance: FINASTERIDE
  2. ATORVASTATIN [Concomitant]
     Active Substance: ATORVASTATIN
  3. WARFARIN [Concomitant]
     Active Substance: WARFARIN
  4. LIRAGLUTID [Concomitant]
     Active Substance: LIRAGLUTIDE
  5. OMEPRAZOLE. [Concomitant]
     Active Substance: OMEPRAZOLE
  6. TRAMADOL. [Concomitant]
     Active Substance: TRAMADOL
  7. IRON [Concomitant]
     Active Substance: IRON
  8. LISINOPRIL. [Suspect]
     Active Substance: LISINOPRIL
     Indication: HYPERTENSION
     Route: 048
     Dates: end: 20181101
  9. TAMSULOSIN [Concomitant]
     Active Substance: TAMSULOSIN

REACTIONS (4)
  - Angioedema [Recovered/Resolved]
  - Stridor [Recovered/Resolved]
  - Ludwig angina [Recovered/Resolved]
  - Gingivitis [Recovered/Resolved]

NARRATIVE: CASE EVENT DATE: 20181101
